FAERS Safety Report 6305526-1 (Version None)
Quarter: 2009Q3

REPORT INFORMATION
  Report Type: 
  Country: None (occurrence: None)
  Receive Date: 20090807
  Receipt Date: 20090730
  Transmission Date: 20100115
  Serious: Yes (Hospitalization)
  Sender: FDA-Public Use
  Company Number: GXKR2009FI08708

PATIENT
  Age: 75 Year
  Sex: Female

DRUGS (2)
  1. SIMVASTATIN [Suspect]
     Indication: HYPERCHOLESTEROLAEMIA
     Dosage: 40 MG/DAY
  2. REUMACON(DEMETHYL PODOPHYLLOTOXIN BENZYLIDENE GLUCOSID, PODOPHYLLOTOXI [Suspect]
     Indication: ARTHRITIS
     Dosage: 100 MG, BID

REACTIONS (4)
  - ALANINE AMINOTRANSFERASE INCREASED [None]
  - BLOOD ALBUMIN DECREASED [None]
  - DRUG INTERACTION [None]
  - RHABDOMYOLYSIS [None]
